FAERS Safety Report 17096495 (Version 1)
Quarter: 2019Q4

REPORT INFORMATION
  Report Type: Spontaneous
  Country: US (occurrence: US)
  Receive Date: 20191202
  Receipt Date: 20191202
  Transmission Date: 20200122
  Serious: No
  Sender: FDA-Public Use
  Company Number: US-AUROBINDO-AUR-APL-2018-061799

PATIENT
  Age: 18 Year
  Sex: Female
  Weight: 93.42 kg

DRUGS (1)
  1. FLUCONAZOLE TABLETS 150 MG [Suspect]
     Active Substance: FLUCONAZOLE
     Indication: FUNGAL INFECTION
     Dosage: UNK, AS DIRECTED
     Route: 048
     Dates: start: 20181214

REACTIONS (1)
  - Drug ineffective [Unknown]
